FAERS Safety Report 9342711 (Version 1)
Quarter: 2013Q2

REPORT INFORMATION
  Report Type: Spontaneous
  Country: US (occurrence: US)
  Receive Date: 20130611
  Receipt Date: 20130611
  Transmission Date: 20140414
  Serious: Yes (Other)
  Sender: FDA-Public Use
  Company Number: US-BAYER-2013-071394

PATIENT
  Age: 24 Year
  Sex: Female

DRUGS (7)
  1. YAZ [Suspect]
     Indication: CONTRACEPTION
  2. GIANVI [Suspect]
  3. DIPHENIST [Concomitant]
     Dosage: 25 MG, UNK
     Dates: start: 20120914
  4. LORATADINE [Concomitant]
     Dosage: 10 MG, UNK
     Dates: start: 20120914
  5. PERMETHRIN [Concomitant]
     Dosage: 5 %, UNK
     Dates: start: 20121003
  6. CLARITIN [Concomitant]
     Dosage: UNK
     Dates: start: 20121016
  7. NUVARING [Concomitant]
     Indication: CONTRACEPTION

REACTIONS (1)
  - Pulmonary thrombosis [None]
